FAERS Safety Report 5211889-0 (Version None)
Quarter: 2007Q1

REPORT INFORMATION
  Report Type: 
  Country: None (occurrence: None)
  Receive Date: 20070116
  Receipt Date: 20070116
  Transmission Date: 20070707
  Serious: Yes (Other)
  Sender: FDA-Public Use
  Company Number: None

PATIENT
  Age: 83 Year
  Sex: Female
  Weight: 59.8748 kg

DRUGS (28)
  1. TECHNETIUM 99M [Suspect]
     Indication: BONE SCAN
     Dates: start: 20061229
  2. PENICILLIN + GENERATIONALS [Concomitant]
  3. CODEINE SUL TAB [Concomitant]
  4. FENTANYL TRANSDERMAL SYSTEM [Concomitant]
  5. DURALGIC [Concomitant]
  6. PERCOCET [Concomitant]
  7. DARVOCET [Concomitant]
  8. DARVON [Concomitant]
  9. ZOMETA [Concomitant]
  10. ACTIQ [Concomitant]
  11. RMS MORPHINE SUPPOSITORIES [Concomitant]
  12. BETA BLOCKERS [Concomitant]
  13. LEVAQUIN [Concomitant]
  14. CEPHALEXIN [Concomitant]
  15. QUININE SULFATE [Concomitant]
  16. METRONIDAZOLE [Concomitant]
  17. SMZ-TMP [Concomitant]
  18. AMITRIP/PERPHEN [Concomitant]
  19. FUROSEMIDE [Concomitant]
  20. ZITHROMAX [Concomitant]
  21. CLINDAMYCIN [Concomitant]
  22. DOXYCYCLINE [Concomitant]
  23. AMITRIP/PERPHEN [Concomitant]
  24. BIAXIN XL [Concomitant]
  25. VANCOCIN HCL [Concomitant]
  26. BIAXIN XL [Concomitant]
  27. VANCOCIN HCL [Concomitant]
  28. COSOPT [Concomitant]

REACTIONS (8)
  - ANXIETY [None]
  - ASTHENIA [None]
  - MALAISE [None]
  - MOVEMENT DISORDER [None]
  - MUSCLE DISORDER [None]
  - OEDEMA PERIPHERAL [None]
  - PAIN [None]
  - POST PROCEDURAL COMPLICATION [None]
